FAERS Safety Report 10633539 (Version 1)
Quarter: 2014Q4

REPORT INFORMATION
  Report Type: Spontaneous
  Country: IN (occurrence: IN)
  Receive Date: 20141205
  Receipt Date: 20141205
  Transmission Date: 20150529
  Serious: Yes (Death, Hospitalization)
  Sender: FDA-Public Use
  Company Number: IN-SUN PHARMACEUTICAL INDUSTRIES LTD-2014SUN02740

PATIENT
  Age: 64 Year
  Sex: Male

DRUGS (3)
  1. RIVASTIGMINE [Suspect]
     Active Substance: RIVASTIGMINE
     Indication: DEMENTIA WITH LEWY BODIES
     Dosage: 3 MG, BID
     Route: 065
  2. CARBIDOPA + LEVODOPA ER TABS 25MG/100MG [Suspect]
     Active Substance: CARBIDOPA\LEVODOPA
     Dosage: 100/25 MG ONE TABLET DAILY
     Route: 065
  3. CARBIDOPA + LEVODOPA ER TABS 25MG/100MG [Suspect]
     Active Substance: CARBIDOPA\LEVODOPA
     Indication: DEMENTIA WITH LEWY BODIES
     Dosage: 100/25 MG HALF TABLETS, TWICE DAILY
     Route: 065

REACTIONS (2)
  - Cardiac arrest [Fatal]
  - Serotonin syndrome [Recovering/Resolving]
